FAERS Safety Report 17378197 (Version 1)
Quarter: 2020Q1

REPORT INFORMATION
  Report Type: Report from Study
  Country: US (occurrence: US)
  Receive Date: 20200206
  Receipt Date: 20200206
  Transmission Date: 20200409
  Serious: Yes (Death, Hospitalization)
  Sender: FDA-Public Use
  Company Number: US-BAYER-2020-020039

PATIENT
  Age: 57 Year
  Sex: Male

DRUGS (7)
  1. STIVARGA [Suspect]
     Active Substance: REGORAFENIB
     Indication: COLORECTAL CANCER
     Dosage: DAILY DOSE 120 MG
     Dates: start: 20200103, end: 20200113
  2. METRONIDAZOLE. [Concomitant]
     Active Substance: METRONIDAZOLE
     Indication: SKIN LESION
     Dosage: 1 DF, TID
     Route: 048
     Dates: start: 20200124, end: 20200131
  3. UREA. [Concomitant]
     Active Substance: UREA
     Indication: SKIN IRRITATION
     Dosage: APPLY LIBERALLY TO BODY
     Dates: start: 20200124, end: 20200131
  4. FLUCONAZOLE. [Concomitant]
     Active Substance: FLUCONAZOLE
     Indication: FUNGAL INFECTION
     Dosage: 1 QD
     Route: 048
     Dates: start: 20200124, end: 20200131
  5. BACTRIM [Concomitant]
     Active Substance: SULFAMETHOXAZOLE\TRIMETHOPRIM
     Indication: BACTERIAL INFECTION
     Dosage: 1 DF, BID
     Route: 048
     Dates: start: 20200124, end: 20200131
  6. MEDROL [Concomitant]
     Active Substance: METHYLPREDNISOLONE
     Indication: STEROID THERAPY
     Dosage: TAKE AS DIRECTED
     Dates: start: 20200124, end: 20200131
  7. TRIAMCINOLONE [Concomitant]
     Active Substance: TRIAMCINOLONE
     Indication: INFLAMMATION
     Dosage: APPLY TOPICALLY BID
     Dates: start: 20200124, end: 20200131

REACTIONS (4)
  - Palmar-plantar erythrodysaesthesia syndrome [Fatal]
  - Thermal burn [None]
  - Off label use [None]
  - Burning sensation [None]

NARRATIVE: CASE EVENT DATE: 20200103
